FAERS Safety Report 14217791 (Version 1)
Quarter: 2017Q4

REPORT INFORMATION
  Report Type: Spontaneous
  Country: US (occurrence: US)
  Receive Date: 20171123
  Receipt Date: 20171123
  Transmission Date: 20180321
  Serious: No
  Sender: FDA-Public Use
  Company Number: US-PFIZER INC-2017503995

PATIENT
  Age: 84 Year
  Sex: Female
  Weight: 65.77 kg

DRUGS (9)
  1. CALCIUM WITH VITAMIN D [Concomitant]
     Active Substance: CALCIUM\VITAMIN D
     Dosage: [CALCIUM 500MG]/[VITAMIN D 1000 IU] CHEWABLE, ONE CHEWABLE PER DAY
     Route: 048
  2. LOSARTAN. [Concomitant]
     Active Substance: LOSARTAN
     Indication: BLOOD PRESSURE ABNORMAL
     Dosage: 50MG TABLET EVERYDAY
     Route: 048
  3. MEMANTINE HCL [Concomitant]
     Active Substance: MEMANTINE
     Dosage: 5 MG, 2X/DAY(1/2 TABLET IN THE MORNING AND AT NIGHT FOR ONE WEEK)
  4. MYRBETRIQ [Concomitant]
     Active Substance: MIRABEGRON
     Indication: INCONTINENCE
     Dosage: 50MG TABLET, DAILY BY MOUTH
     Route: 048
  5. MEMANTINE HCL [Concomitant]
     Active Substance: MEMANTINE
     Dosage: 10 MG, 2X/DAY(TOOK 1 TABLET IN THE MORNING AND 1 TABLET AT NIGHT)
  6. MEMANTINE HCL [Concomitant]
     Active Substance: MEMANTINE
     Dosage: 15 MG, DAILY(1 FULL TABLET AT NIGHT AND A HALF TABLET IN THE MORNING FOR ONE WEEK)
  7. MEMANTINE HCL [Concomitant]
     Active Substance: MEMANTINE
     Indication: DEMENTIA
     Dosage: 5 MG(10 MG TABLET, 1/2 TABLET), AT NIGHT
     Route: 048
     Dates: start: 20170831
  8. ZOLOFT [Suspect]
     Active Substance: SERTRALINE HYDROCHLORIDE
     Indication: DEPRESSION
     Dosage: 1 DF, DAILY
     Route: 048
     Dates: start: 20171117, end: 20171119
  9. SIMVASTATIN. [Concomitant]
     Active Substance: SIMVASTATIN
     Indication: BLOOD CHOLESTEROL ABNORMAL
     Dosage: 10MG TABLET DAILY BY MOUTH
     Route: 048

REACTIONS (6)
  - Tremor [Unknown]
  - Movement disorder [Unknown]
  - Dizziness [Unknown]
  - Balance disorder [Unknown]
  - Confusional state [Unknown]
  - Fatigue [Unknown]

NARRATIVE: CASE EVENT DATE: 20171118
